FAERS Safety Report 24979145 (Version 2)
Quarter: 2025Q1

REPORT INFORMATION
  Report Type: Spontaneous
  Country: JP (occurrence: JP)
  Receive Date: 20250218
  Receipt Date: 20250331
  Transmission Date: 20250409
  Serious: Yes (Death, Hospitalization, Other)
  Sender: ASTELLAS
  Company Number: JP-ASTELLAS-2025-AER-005642

PATIENT
  Age: 75 Year
  Sex: Male
  Weight: 59 kg

DRUGS (14)
  1. PADCEV [Suspect]
     Active Substance: ENFORTUMAB VEDOTIN-EJFV
     Indication: Malignant neoplasm of renal pelvis
     Route: 042
     Dates: start: 20241018, end: 20241227
  2. PADCEV [Suspect]
     Active Substance: ENFORTUMAB VEDOTIN-EJFV
     Indication: Metastases to lung
  3. KEYTRUDA [Suspect]
     Active Substance: PEMBROLIZUMAB
     Indication: Malignant neoplasm of renal pelvis
     Route: 042
     Dates: start: 20241018, end: 20241220
  4. KEYTRUDA [Suspect]
     Active Substance: PEMBROLIZUMAB
     Indication: Metastases to lung
  5. CLOPIDOGREL [Concomitant]
     Active Substance: CLOPIDOGREL BISULFATE
     Indication: Cerebral infarction
     Dosage: ONCE DAILY AFTER BREAKFAST
     Route: 065
  6. CABPIRIN Combination Tablet [Concomitant]
     Indication: Cerebral infarction
     Dosage: ONCE DAILY AFTER BREAKFAST
     Route: 065
  7. Rosuvastatin OD Tablet [Concomitant]
     Indication: Product used for unknown indication
     Dosage: ONCE DAILY AFTER BREAKFAST
     Route: 065
  8. JARDIANCE [Concomitant]
     Active Substance: EMPAGLIFLOZIN
     Indication: Product used for unknown indication
     Dosage: ONCE DAILY AFTER BREAKFAST
     Route: 065
  9. Ezetimibe tablet [Concomitant]
     Indication: Product used for unknown indication
     Dosage: ONCE DAILY AFTER BREAKFAST
     Route: 065
  10. ICOSAPENT ETHYL [Concomitant]
     Active Substance: ICOSAPENT ETHYL
     Indication: Cerebral infarction
     Dosage: TWICE DAILY AFTER BREAKFAST AND DINNER
     Route: 065
  11. Benidipine tablet [Concomitant]
     Indication: Product used for unknown indication
     Dosage: TWICE DAILY AFTER BREAKFAST AND DINNER
     Route: 065
  12. MIYA-BM [Concomitant]
     Active Substance: CLOSTRIDIUM BUTYRICUM SPORES STRAIN M-55
     Indication: Product used for unknown indication
     Dosage: THRICE DAILY AFTER MEALS
     Route: 065
     Dates: start: 20241108
  13. Nicorandil tablet [Concomitant]
     Indication: Product used for unknown indication
     Dosage: ONCE DAILY BEFORE BEDTIME
     Route: 065
  14. METHYLCOBALAMIN [Concomitant]
     Active Substance: METHYLCOBALAMIN
     Indication: Neuropathy peripheral
     Dosage: THRICE DAILY AFTER MEALS
     Route: 065
     Dates: start: 20241220

REACTIONS (3)
  - Interstitial lung disease [Fatal]
  - Pulmonary toxicity [Fatal]
  - Neuropathy peripheral [Unknown]

NARRATIVE: CASE EVENT DATE: 20241220
